FAERS Safety Report 8815123 (Version 5)
Quarter: 2013Q4

REPORT INFORMATION
  Report Type: Report from Study
  Country: JP (occurrence: JP)
  Receive Date: 20120928
  Receipt Date: 20131021
  Transmission Date: 20140711
  Serious: Yes (Hospitalization)
  Sender: FDA-Public Use
  Company Number: JP-VERTEX PHARMACEUTICAL INC.-2012-021945

PATIENT
  Age: 63 Year
  Sex: Female

DRUGS (15)
  1. VX-950 (TELAPREVIR) [Suspect]
     Indication: CHRONIC HEPATITIS C
     Dosage: 2250 MG, QD
     Route: 048
     Dates: start: 20120605, end: 20120625
  2. VX-950 (TELAPREVIR) [Suspect]
     Dosage: 1500 MG, QD
     Route: 048
     Dates: start: 20120626, end: 20120725
  3. REBETOL [Suspect]
     Indication: CHRONIC HEPATITIS C
     Dosage: 600 MG, QD
     Route: 048
     Dates: start: 20120605, end: 20120618
  4. REBETOL [Suspect]
     Dosage: 400 MG, QD
     Route: 048
     Dates: start: 20120619, end: 20120702
  5. REBETOL [Suspect]
     Dosage: 200 MG, QD
     Route: 048
     Dates: start: 20120703, end: 20120726
  6. PEGINTRON [Suspect]
     Indication: CHRONIC HEPATITIS C
     Dosage: 1.6 ?G/KG, QW
     Route: 058
     Dates: start: 20120605, end: 20120612
  7. PEGINTRON [Suspect]
     Dosage: 1.3 ?G/KG, QW
     Route: 058
     Dates: start: 20120619, end: 20120724
  8. PROMAC [Concomitant]
     Dosage: 150 MG, QD
     Route: 048
     Dates: start: 20120605
  9. LIVALO [Concomitant]
     Dosage: 1 MG, QD
     Route: 048
     Dates: start: 20120605
  10. EPADEL  S [Concomitant]
     Dosage: 1200 MG, QD
     Route: 048
     Dates: start: 20120605, end: 20120702
  11. NU-LOTAN [Concomitant]
     Dosage: 50 MG, QD
     Route: 048
     Dates: start: 20120619, end: 20120903
  12. NU-LOTAN [Concomitant]
     Dosage: 25 MG, QD
     Route: 048
     Dates: start: 20120904
  13. DOGMATYL [Concomitant]
     Dosage: 100 MG, QD
     Route: 048
     Dates: start: 20120626, end: 20120731
  14. BETAMAC [Concomitant]
     Dosage: 100 MG, QD
     Route: 048
     Dates: start: 20120801, end: 20120822
  15. ACINON [Concomitant]
     Dosage: 300 MG, QD
     Route: 048
     Dates: start: 20120605, end: 20120903

REACTIONS (1)
  - Stevens-Johnson syndrome [Recovered/Resolved]
